FAERS Safety Report 14354454 (Version 1)
Quarter: 2018Q1

REPORT INFORMATION
  Report Type: Spontaneous
  Country: US (occurrence: US)
  Receive Date: 20180104
  Receipt Date: 20180104
  Transmission Date: 20180509
  Serious: Yes (Death)
  Sender: FDA-Public Use
  Company Number: None

PATIENT
  Age: 77 Year
  Sex: Male

DRUGS (1)
  1. REVLIMID [Suspect]
     Active Substance: LENALIDOMIDE
     Indication: CHRONIC LYMPHOCYTIC LEUKAEMIA
     Route: 048
     Dates: start: 20171113

REACTIONS (6)
  - Therapy cessation [None]
  - Pain in extremity [None]
  - Fall [None]
  - Cellulitis [None]
  - Haemorrhage [None]
  - Oedema [None]

NARRATIVE: CASE EVENT DATE: 20171212
